FAERS Safety Report 13646677 (Version 1)
Quarter: 2017Q2

REPORT INFORMATION
  Report Type: Report from Study
  Country: BR (occurrence: BR)
  Receive Date: 20170613
  Receipt Date: 20170613
  Transmission Date: 20170830
  Serious: Yes (Hospitalization, Other)
  Sender: FDA-Public Use
  Company Number: PHHY2017BR085121

PATIENT
  Sex: Female
  Weight: 80 kg

DRUGS (3)
  1. DIOVAN HCT [Suspect]
     Active Substance: HYDROCHLOROTHIAZIDE\VALSARTAN
     Dosage: (HYDROCHLOORTHIAZIDE 12.5/DIOVAN 80 MG)
     Route: 048
  2. DIOVAN HCT [Suspect]
     Active Substance: HYDROCHLOROTHIAZIDE\VALSARTAN
     Indication: HYPERTENSION
     Dosage: 1 DF, QD (HYDROCHLOROTHIAZIDE 12.5/VALSARTAN 320 MG)
     Route: 048
  3. XARELTO [Concomitant]
     Active Substance: RIVAROXABAN
     Indication: PRODUCT USED FOR UNKNOWN INDICATION
     Dosage: 15 MG, QD
     Route: 048

REACTIONS (10)
  - Lung disorder [Unknown]
  - Erysipelas [Unknown]
  - Hypotension [Recovered/Resolved]
  - Body fat disorder [Unknown]
  - Malaise [Recovering/Resolving]
  - Fatigue [Recovering/Resolving]
  - Erythema [Recovered/Resolved]
  - Dyspnoea [Recovering/Resolving]
  - Pulmonary oedema [Unknown]
  - Movement disorder [Unknown]
